FAERS Safety Report 7645043-X (Version None)
Quarter: 2011Q3

REPORT INFORMATION
  Report Type: 
  Country: None (occurrence: None)
  Receive Date: 20110729
  Receipt Date: 20110719
  Transmission Date: 20111222
  Serious: Yes (Other)
  Sender: FDA-Public Use
  Company Number: KE-GLAXOSMITHKLINE-B0735083A

PATIENT
  Age: 59 Year
  Sex: Male

DRUGS (2)
  1. AVODART [Suspect]
     Indication: PROSTATOMEGALY
     Dosage: .5MG PER DAY
     Route: 048
     Dates: start: 20101116
  2. ALFUZOSIN HCL [Concomitant]
     Indication: PROSTATOMEGALY
     Dosage: 10MG PER DAY
     Route: 048
     Dates: start: 20100919

REACTIONS (3)
  - DERMATITIS [None]
  - PRURITUS GENERALISED [None]
  - RASH MACULO-PAPULAR [None]
